FAERS Safety Report 15458845 (Version 2)
Quarter: 2018Q4

REPORT INFORMATION
  Report Type: Report from Study
  Country: None (occurrence: US)
  Receive Date: 20181003
  Receipt Date: 20181120
  Transmission Date: 20190204
  Serious: Yes (Hospitalization)
  Sender: FDA-Public Use
  Company Number: US-ABBVIE-18K-163-2315594-00

PATIENT
  Age: 56 Year
  Sex: Female
  Weight: 143.46 kg

DRUGS (3)
  1. HUMIRA [Suspect]
     Active Substance: ADALIMUMAB
     Indication: PSORIASIS
  2. HUMIRA [Suspect]
     Active Substance: ADALIMUMAB
     Indication: RHEUMATOID ARTHRITIS
     Route: 058
     Dates: start: 20180323, end: 2018
  3. HUMIRA [Suspect]
     Active Substance: ADALIMUMAB
     Indication: PSORIATIC ARTHROPATHY
     Route: 058
     Dates: start: 201808

REACTIONS (32)
  - Joint swelling [Not Recovered/Not Resolved]
  - Melanocytic naevus [Unknown]
  - Injection site erythema [Recovering/Resolving]
  - Nasopharyngitis [Not Recovered/Not Resolved]
  - Fatigue [Not Recovered/Not Resolved]
  - Mole excision [Unknown]
  - Pain [Not Recovered/Not Resolved]
  - Rash pruritic [Unknown]
  - Skin ulcer [Unknown]
  - Hypoaesthesia [Not Recovered/Not Resolved]
  - Joint stiffness [Not Recovered/Not Resolved]
  - Injection site pruritus [Recovered/Resolved]
  - Arthralgia [Not Recovered/Not Resolved]
  - Dyspnoea [Not Recovered/Not Resolved]
  - Skin infection [Unknown]
  - Uterine polyp [Unknown]
  - Glucose tolerance impaired [Unknown]
  - Injection site haemorrhage [Recovered/Resolved]
  - Pain in extremity [Recovering/Resolving]
  - Musculoskeletal stiffness [Not Recovered/Not Resolved]
  - Cough [Not Recovered/Not Resolved]
  - Paraesthesia [Not Recovered/Not Resolved]
  - Urinary tract infection [Unknown]
  - Rash papular [Unknown]
  - Gait disturbance [Not Recovered/Not Resolved]
  - Injection site bruising [Not Recovered/Not Resolved]
  - Oedema peripheral [Not Recovered/Not Resolved]
  - Discomfort [Not Recovered/Not Resolved]
  - Headache [Not Recovered/Not Resolved]
  - Peripheral swelling [Not Recovered/Not Resolved]
  - Skin lesion [Unknown]
  - Purpura [Unknown]

NARRATIVE: CASE EVENT DATE: 2018
